FAERS Safety Report 4289793-4 (Version None)
Quarter: 2004Q1

REPORT INFORMATION
  Report Type: 
  Country: None (occurrence: None)
  Receive Date: 20040210
  Receipt Date: 20040128
  Transmission Date: 20041129
  Serious: Yes (Other)
  Sender: FDA-Public Use
  Company Number: GR-GLAXOSMITHKLINE-B0321380A

PATIENT
  Age: 42 Year
  Sex: Female

DRUGS (1)
  1. SEROXAT [Suspect]
     Indication: ANXIETY DISORDER
     Dosage: 10MG PER DAY
     Route: 048
     Dates: start: 20020301, end: 20030501

REACTIONS (9)
  - BRADYCARDIA FOETAL [None]
  - CAESAREAN SECTION [None]
  - COMPLICATIONS OF MATERNAL EXPOSURE TO THERAPEUTIC DRUGS [None]
  - HYPERGLYCAEMIA [None]
  - IRON DEFICIENCY ANAEMIA [None]
  - MATERNAL DRUGS AFFECTING FOETUS [None]
  - NEONATAL ASPHYXIA [None]
  - PREMATURE SEPARATION OF PLACENTA [None]
  - STILLBIRTH [None]
